FAERS Safety Report 19104215 (Version 2)
Quarter: 2021Q2

REPORT INFORMATION
  Report Type: Spontaneous
  Country: FR (occurrence: FR)
  Receive Date: 20210407
  Receipt Date: 20210607
  Transmission Date: 20210717
  Serious: Yes (Other)
  Sender: FDA-Public Use
  Company Number: NVSC2021FR073232

PATIENT
  Age: 76 Year
  Sex: Female

DRUGS (5)
  1. DILTIAZEM HYDROCHLORIDE. [Suspect]
     Active Substance: DILTIAZEM HYDROCHLORIDE
     Indication: PRODUCT USED FOR UNKNOWN INDICATION
     Dosage: UNK
     Route: 048
     Dates: start: 20201216
  2. INORIAL [Interacting]
     Active Substance: BILASTINE
     Indication: DERMATITIS ALLERGIC
     Dosage: 40 MG, QD
     Route: 048
     Dates: start: 20201226, end: 20201226
  3. INORIAL [Interacting]
     Active Substance: BILASTINE
     Dosage: 20 MG, QD
     Route: 048
     Dates: start: 20201227
  4. DILTIAZEM HYDROCHLORIDE. [Interacting]
     Active Substance: DILTIAZEM HYDROCHLORIDE
     Dosage: UNK
     Route: 048
  5. INORIAL [Interacting]
     Active Substance: BILASTINE
     Dosage: UNK
     Route: 048

REACTIONS (4)
  - Drug interaction [Recovered/Resolved]
  - Product use in unapproved indication [Recovered/Resolved]
  - Angioedema [Recovered/Resolved]
  - Prescribed overdose [Recovered/Resolved]

NARRATIVE: CASE EVENT DATE: 20201226
